FAERS Safety Report 12427705 (Version 1)
Quarter: 2016Q2

REPORT INFORMATION
  Report Type: Spontaneous
  Country: US (occurrence: None)
  Receive Date: 20160601
  Receipt Date: 20160601
  Transmission Date: 20160815
  Serious: No
  Sender: FDA-Public Use
  Company Number: None

PATIENT
  Sex: Male

DRUGS (3)
  1. GLIPIZIDE. [Suspect]
     Active Substance: GLIPIZIDE
  2. METFORMIN [Suspect]
     Active Substance: METFORMIN HYDROCHLORIDE
  3. PIOGLITAZONE. [Suspect]
     Active Substance: PIOGLITAZONE

REACTIONS (5)
  - Attention deficit/hyperactivity disorder [None]
  - Blood glucose increased [None]
  - Glycosylated haemoglobin increased [None]
  - Nasopharyngitis [None]
  - Drug ineffective [None]
